FAERS Safety Report 6263991-2 (Version None)
Quarter: 2009Q3

REPORT INFORMATION
  Report Type: 
  Country: None (occurrence: None)
  Receive Date: 20090710
  Receipt Date: 20090706
  Transmission Date: 20100115
  Serious: Yes (Life-Threatening)
  Sender: FDA-Public Use
  Company Number: AU-ASTRAZENECA-2009SE04016

PATIENT
  Age: 50 Year
  Sex: Female

DRUGS (4)
  1. PROPOFOL [Suspect]
     Indication: ILEOSTOMY
     Route: 042
     Dates: start: 20080423, end: 20080423
  2. FENTANYL [Suspect]
     Indication: ILEOSTOMY
     Route: 042
     Dates: start: 20080423, end: 20080423
  3. ATRACURIUM BESYLATE [Suspect]
     Indication: ILEOSTOMY
     Route: 042
     Dates: start: 20080423, end: 20080423
  4. MIDAZOLAM HCL [Concomitant]
     Dates: start: 20080423

REACTIONS (4)
  - ANAPHYLACTIC SHOCK [None]
  - BLOOD PRESSURE DECREASED [None]
  - FLUSHING [None]
  - INJECTION SITE URTICARIA [None]
